FAERS Safety Report 18753346 (Version 22)
Quarter: 2022Q3

REPORT INFORMATION
  Report Type: Report from Study
  Country: CA (occurrence: CA)
  Receive Date: 20210118
  Receipt Date: 20220905
  Transmission Date: 20221027
  Serious: Yes (Hospitalization, Other)
  Sender: FDA-Public Use
  Company Number: CA-TAKEDA-CA202021994

PATIENT
  Age: 5 Year
  Sex: Male
  Weight: 35 kg

DRUGS (10)
  1. IDURSULFASE [Suspect]
     Active Substance: IDURSULFASE
     Indication: Mucopolysaccharidosis II
     Dosage: 3 DOSAGE FORM, 1X/WEEK
     Route: 065
     Dates: start: 20191213
  2. IDURSULFASE [Suspect]
     Active Substance: IDURSULFASE
     Dosage: 18 MILLIGRAM, 1/WEEK
     Route: 065
     Dates: start: 20191213
  3. IDURSULFASE [Suspect]
     Active Substance: IDURSULFASE
     Dosage: 3 DOSAGE FORM, 1/WEEK
     Route: 065
     Dates: start: 20191213
  4. IDURSULFASE [Suspect]
     Active Substance: IDURSULFASE
     Dosage: 3 DOSAGE FORM, 1/WEEK
     Route: 065
     Dates: start: 20191213
  5. IDURSULFASE [Suspect]
     Active Substance: IDURSULFASE
     Dosage: 3 DOSAGE FORM, 1/WEEK
     Route: 065
     Dates: start: 20191213
  6. IDURSULFASE [Suspect]
     Active Substance: IDURSULFASE
     Dosage: 3 INTERNATIONAL UNIT, 1/WEEK
     Route: 065
     Dates: start: 20191213
  7. IDURSULFASE [Suspect]
     Active Substance: IDURSULFASE
     Dosage: 3 DOSAGE FORM, 1/WEEK
     Route: 065
     Dates: start: 20191213
  8. IDURSULFASE [Suspect]
     Active Substance: IDURSULFASE
     Dosage: 3 DOSAGE FORM, 1/WEEK
     Route: 050
     Dates: start: 20191213
  9. IDURSULFASE [Suspect]
     Active Substance: IDURSULFASE
     Dosage: 3 DOSAGE FORM, 1/WEEK
     Route: 050
     Dates: start: 20191213
  10. IDURSULFASE [Suspect]
     Active Substance: IDURSULFASE
     Dosage: 3 DOSAGE FORM, 1/WEEK
     Route: 050
     Dates: start: 20191213

REACTIONS (30)
  - Carpal tunnel syndrome [Recovering/Resolving]
  - Syncope [Recovered/Resolved]
  - Cognitive disorder [Not Recovered/Not Resolved]
  - Weight increased [Not Recovered/Not Resolved]
  - Aggression [Recovered/Resolved]
  - Aphasia [Not Recovered/Not Resolved]
  - Crying [Recovered/Resolved]
  - Screaming [Not Recovered/Not Resolved]
  - Anxiety [Not Recovered/Not Resolved]
  - Patient uncooperative [Recovered/Resolved]
  - Gastrointestinal motility disorder [Not Recovered/Not Resolved]
  - Fear [Not Recovered/Not Resolved]
  - Nervousness [Unknown]
  - Poor venous access [Recovered/Resolved]
  - Emotional distress [Recovered/Resolved]
  - Infusion site pain [Unknown]
  - Infusion site rash [Unknown]
  - Respiratory rate increased [Unknown]
  - Blood pressure increased [Unknown]
  - Agitation [Recovered/Resolved]
  - Heart rate decreased [Unknown]
  - Pollakiuria [Unknown]
  - Anal incontinence [Unknown]
  - Infusion related reaction [Unknown]
  - Respiratory rate decreased [Recovered/Resolved]
  - Device alarm issue [Unknown]
  - Weight decreased [Not Recovered/Not Resolved]
  - Product dose omission issue [Unknown]
  - Inappropriate schedule of product administration [Unknown]
  - Intentional self-injury [Recovered/Resolved]

NARRATIVE: CASE EVENT DATE: 20200626
